FAERS Safety Report 20581023 (Version 2)
Quarter: 2022Q2

REPORT INFORMATION
  Report Type: Spontaneous
  Country: US (occurrence: None)
  Receive Date: 20220311
  Receipt Date: 20220420
  Transmission Date: 20220721
  Serious: No
  Sender: FDA-Public Use
  Company Number: 2022A070895

PATIENT
  Age: 20788 Day
  Sex: Female
  Weight: 154.2 kg

DRUGS (1)
  1. BYDUREON BCISE [Suspect]
     Active Substance: EXENATIDE
     Indication: Type 2 diabetes mellitus
     Route: 058

REACTIONS (8)
  - Injection site mass [Recovered/Resolved]
  - Injection site discomfort [Recovered/Resolved]
  - Device use issue [Unknown]
  - Incorrect dose administered by device [Unknown]
  - Device physical property issue [Not Recovered/Not Resolved]
  - Device delivery system issue [Unknown]
  - Device leakage [Unknown]
  - Wrong technique in device usage process [Unknown]

NARRATIVE: CASE EVENT DATE: 20220204
